FAERS Safety Report 18973125 (Version 3)
Quarter: 2021Q1

REPORT INFORMATION
  Report Type: Spontaneous
  Country: IT (occurrence: IT)
  Receive Date: 20210305
  Receipt Date: 20210324
  Transmission Date: 20210420
  Serious: Yes (Other)
  Sender: FDA-Public Use
  Company Number: IT-ASTELLAS-2021US007663

PATIENT
  Age: 7 Year
  Sex: Male

DRUGS (7)
  1. MYCOPHENOLIC ACID. [Suspect]
     Active Substance: MYCOPHENOLIC ACID
     Dosage: 250 MG, TWICE DAILY (REDUCED DOSE)
     Route: 048
  2. TACROLIMUS. [Suspect]
     Active Substance: TACROLIMUS
     Indication: PROPHYLAXIS AGAINST TRANSPLANT REJECTION
     Route: 048
  3. PREDNISOLONE. [Suspect]
     Active Substance: PREDNISOLONE
     Indication: PROPHYLAXIS AGAINST TRANSPLANT REJECTION
     Route: 065
  4. DEXAMETHASONE. [Concomitant]
     Active Substance: DEXAMETHASONE
     Indication: PERTUSSIS
     Dosage: UNK UNK, UNKNOWN FREQ.
     Route: 065
     Dates: start: 201706
  5. DEXAMETHASONE. [Concomitant]
     Active Substance: DEXAMETHASONE
     Indication: FACIAL PARALYSIS
  6. MYCOPHENOLIC ACID. [Suspect]
     Active Substance: MYCOPHENOLIC ACID
     Indication: PROPHYLAXIS AGAINST TRANSPLANT REJECTION
     Dosage: UNK UNK, UNKNOWN FREQ.
     Route: 065
  7. DEXAMETHASONE. [Concomitant]
     Active Substance: DEXAMETHASONE
     Indication: EAR INFECTION

REACTIONS (7)
  - BK virus infection [Unknown]
  - JC virus infection [Unknown]
  - Polyomavirus viraemia [Unknown]
  - Urinary tract infection viral [Unknown]
  - Polyomavirus viraemia [Unknown]
  - Blood creatinine increased [Recovered/Resolved]
  - Trichodysplasia spinulosa [Unknown]

NARRATIVE: CASE EVENT DATE: 2017
